FAERS Safety Report 10625875 (Version 1)
Quarter: 2014Q4

REPORT INFORMATION
  Report Type: Spontaneous
  Country: US (occurrence: None)
  Receive Date: 20141121
  Receipt Date: 20141121
  Transmission Date: 20150529
  Serious: No
  Sender: FDA-Public Use
  Company Number: 163-10004-14083210

PATIENT
  Age: 60 Year
  Sex: Female

DRUGS (11)
  1. HYDROCHLOROTHIAZIDE. [Concomitant]
     Active Substance: HYDROCHLOROTHIAZIDE
  2. GABAPENTIN. [Concomitant]
     Active Substance: GABAPENTIN
  3. METHOTREXATE [Concomitant]
     Active Substance: METHOTREXATE
  4. PATONOL (OLOPATADINE HYDROCHLORIDE) [Concomitant]
  5. LEFLUNOMIDE. [Concomitant]
     Active Substance: LEFLUNOMIDE
  6. METOPROLOL [Concomitant]
     Active Substance: METOPROLOL
  7. CIPROFLOXACIN. [Concomitant]
     Active Substance: CIPROFLOXACIN
  8. OTEZLA [Suspect]
     Active Substance: APREMILAST
     Indication: PSORIATIC ARTHROPATHY
     Dosage: 60 MG, 2 IN 1 D, PO
     Route: 048
     Dates: start: 20140722
  9. PREDNISONE. [Concomitant]
     Active Substance: PREDNISONE
  10. ENBREL SURE CLICK (ETANERCEPT) [Concomitant]
  11. OMEPRAZOLE. [Concomitant]
     Active Substance: OMEPRAZOLE

REACTIONS (2)
  - Headache [None]
  - Diarrhoea [None]

NARRATIVE: CASE EVENT DATE: 2014
